FAERS Safety Report 17169620 (Version 6)
Quarter: 2024Q4

REPORT INFORMATION
  Report Type: Spontaneous
  Country: US (occurrence: US)
  Receive Date: 20191218
  Receipt Date: 20241114
  Transmission Date: 20250115
  Serious: No
  Sender: VERTEX
  Company Number: US-VERTEX PHARMACEUTICALS-2019-011924

PATIENT
  Age: 17 Year
  Sex: Female
  Weight: 56 kg

DRUGS (10)
  1. TRIKAFTA [Suspect]
     Active Substance: ELEXACAFTOR\IVACAFTOR\TEZACAFTOR
     Indication: Cystic fibrosis
     Dosage: 2 TABS (100MG ELEXA/ 50 MG TEZA/ 75 MG IVA) AM AND 1 TAB (150 MG IVA) PM
     Route: 048
     Dates: start: 20191124, end: 20200207
  2. TRIKAFTA [Suspect]
     Active Substance: ELEXACAFTOR\IVACAFTOR\TEZACAFTOR
     Dosage: 50 MG ELEXA/ 25 MG TEZA/ 37.5 MG IVA AND 75 MG IVA
     Route: 048
     Dates: start: 20230803, end: 20230804
  3. CAYSTON [Concomitant]
     Active Substance: AZTREONAM
     Dosage: 75 MG
  4. CROMOLYN [Concomitant]
     Active Substance: CROMOLYN
     Dosage: 20 MG/2ML NEB SOLN
  5. ACETYLCYSTEINE [Concomitant]
     Active Substance: ACETYLCYSTEINE
  6. VITAMIN C [Concomitant]
     Active Substance: ASCORBIC ACID
  7. ZYRTEC [Concomitant]
     Active Substance: CETIRIZINE HYDROCHLORIDE
  8. PREVACID [Concomitant]
     Active Substance: LANSOPRAZOLE
  9. ALBUTEROL SULFATE [Concomitant]
     Active Substance: ALBUTEROL SULFATE
  10. ADVAIR HFA [Concomitant]
     Active Substance: FLUTICASONE PROPIONATE\SALMETEROL XINAFOATE
     Dosage: 100-50MCG BLST W/DEV

REACTIONS (4)
  - Back pain [Recovered/Resolved]
  - Oropharyngeal pain [Unknown]
  - Headache [Recovered/Resolved]
  - Pancreatic cyst [Recovering/Resolving]

NARRATIVE: CASE EVENT DATE: 20191124
